FAERS Safety Report 4587492-2 (Version None)
Quarter: 2005Q1

REPORT INFORMATION
  Report Type: 
  Country: None (occurrence: None)
  Receive Date: 20050215
  Receipt Date: 20050202
  Transmission Date: 20050727
  Serious: Yes (Other)
  Sender: FDA-Public Use
  Company Number: 2005025408

PATIENT
  Age: 19 Year
  Sex: Female

DRUGS (4)
  1. GEODON [Suspect]
     Indication: SCHIZOPHRENIA
     Dosage: 80 MG (40 MG, 2 IN 1 D), ORAL
     Route: 048
     Dates: start: 20041108, end: 20050104
  2. ZOLOFT [Suspect]
     Indication: DEPRESSION
     Dosage: 50 MG (50 MG, 1 IN 1 D), ORAL
     Route: 048
     Dates: start: 20041108, end: 20041118
  3. MIRTAZAPINE [Suspect]
     Indication: ILL-DEFINED DISORDER
     Dates: end: 20050101
  4. BUPROPION HYDROCHLORIDE [Concomitant]

REACTIONS (5)
  - AGRANULOCYTOSIS [None]
  - DRUG INEFFECTIVE [None]
  - NEUTROPENIA [None]
  - NEUTROPHIL COUNT DECREASED [None]
  - WHITE BLOOD CELL COUNT DECREASED [None]
